FAERS Safety Report 9137680 (Version 3)
Quarter: 2015Q3

REPORT INFORMATION
  Report Type: Spontaneous
  Country: CA (occurrence: CA)
  Receive Date: 20130304
  Receipt Date: 20150724
  Transmission Date: 20151125
  Serious: Yes (Other)
  Sender: FDA-Public Use
  Company Number: CA-BAUSCH-BL-2012-002266

PATIENT
  Age: 27 Year
  Sex: Female
  Weight: 59.02 kg

DRUGS (3)
  1. LOTEMAX [Suspect]
     Active Substance: LOTEPREDNOL ETABONATE
     Indication: POSTOPERATIVE CARE
     Dosage: DROP; OPHTHALMIC
     Route: 047
  2. BESIVANCE [Suspect]
     Active Substance: BESIFLOXACIN
     Indication: POSTOPERATIVE CARE
     Dosage: DROP; OPHTHALMIC
     Route: 047
  3. LIPOSIC OPHTHALMIC DROPS [Suspect]
     Active Substance: CARBOMER
     Indication: POSTOPERATIVE CARE
     Dosage: DROP; OPHTHALMIC
     Route: 047

REACTIONS (15)
  - Corneal infiltrates [Recovered/Resolved]
  - Corneal striae [Unknown]
  - Eye irritation [Unknown]
  - Medication residue present [Recovered/Resolved]
  - Vision blurred [Unknown]
  - Corneal infiltrates [Recovered/Resolved]
  - Ocular discomfort [Recovered/Resolved]
  - Photophobia [Unknown]
  - Diffuse lamellar keratitis [Recovered/Resolved]
  - Foreign body sensation in eyes [Recovered/Resolved]
  - Punctate keratitis [Recovered/Resolved]
  - Corneal flap complication [Unknown]
  - Eye oedema [Unknown]
  - Intentional product use issue [Recovered/Resolved]
  - Dry eye [Recovered/Resolved]

NARRATIVE: CASE EVENT DATE: 20121101
